FAERS Safety Report 26217322 (Version 1)
Quarter: 2025Q4

REPORT INFORMATION
  Report Type: Spontaneous
  Country: US (occurrence: US)
  Receive Date: 20251231
  Receipt Date: 20251231
  Transmission Date: 20260117
  Serious: Yes (Hospitalization, Other)
  Sender: MDD OPERATIONS
  Company Number: US-SUP-SUP202512-005451

PATIENT
  Age: 19 Year
  Sex: Female

DRUGS (2)
  1. ZURZUVAE [Suspect]
     Active Substance: ZURANOLONE
     Indication: Perinatal depression
     Dosage: 50 MG, EVERY 1 DAYS
     Route: 048
     Dates: start: 20251107
  2. ZURZUVAE [Suspect]
     Active Substance: ZURANOLONE
     Dosage: LOWER DOSE OF 1 CAPSULE IN THE EVENING
     Route: 048
     Dates: start: 20251216

REACTIONS (2)
  - Psychotic disorder [Unknown]
  - Suicidal ideation [Unknown]
